FAERS Safety Report 8537070-5 (Version None)
Quarter: 2012Q3

REPORT INFORMATION
  Report Type: 
  Country: None (occurrence: None)
  Receive Date: 20120725
  Receipt Date: 20120715
  Transmission Date: 20120928
  Serious: Yes (Hospitalization, Other)
  Sender: FDA-Public Use
  Company Number: IT-CELGENEUS-083-50794-12050200

PATIENT
  Sex: Female

DRUGS (6)
  1. VIDAZA [Suspect]
     Dosage: DOSE REDUCED
     Route: 041
     Dates: start: 20120301
  2. NORVASC [Concomitant]
     Dosage: .5 TABLET
     Route: 065
  3. VIDAZA [Suspect]
     Route: 041
     Dates: start: 20120101
  4. VIDAZA [Suspect]
     Dosage: 100 MILLIGRAM
     Route: 041
     Dates: start: 20120210, end: 20120215
  5. CYTARABINE [Suspect]
     Route: 065
     Dates: start: 20120101, end: 20120201
  6. TENORETIC [Concomitant]
     Dosage: .5 TABLET
     Route: 065

REACTIONS (4)
  - HAEMATOTOXICITY [None]
  - THROMBOCYTOPENIA [None]
  - INTESTINAL ISCHAEMIA [None]
  - NO THERAPEUTIC RESPONSE [None]
